FAERS Safety Report 13162538 (Version 1)
Quarter: 2017Q1

REPORT INFORMATION
  Report Type: Spontaneous
  Country: US (occurrence: US)
  Receive Date: 20170130
  Receipt Date: 20170130
  Transmission Date: 20170428
  Serious: No
  Sender: FDA-Public Use
  Company Number: US-BAYER-2017-016964

PATIENT
  Sex: Female

DRUGS (2)
  1. CLARITIN [Suspect]
     Active Substance: LORATADINE
     Indication: JOINT SWELLING
  2. CLARITIN [Suspect]
     Active Substance: LORATADINE
     Indication: EYE SWELLING
     Dosage: 1 DF, UNK
     Route: 048
     Dates: start: 20170127

REACTIONS (1)
  - Product use issue [Unknown]

NARRATIVE: CASE EVENT DATE: 20170127
